FAERS Safety Report 23643589 (Version 2)
Quarter: 2024Q2

REPORT INFORMATION
  Report Type: Spontaneous
  Country: US (occurrence: US)
  Receive Date: 20240318
  Receipt Date: 20240515
  Transmission Date: 20240716
  Serious: Yes (Hospitalization, Other)
  Sender: FDA-Public Use
  Company Number: US-GLAXOSMITHKLINE-US2024031630

PATIENT

DRUGS (2)
  1. LAMICTAL [Suspect]
     Active Substance: LAMOTRIGINE
     Indication: Seizure
     Dosage: 0.5 DF(TABLET), BID, 100 MG
     Dates: start: 20120101
  2. LAMICTAL [Suspect]
     Active Substance: LAMOTRIGINE
     Indication: Emphysema
     Dosage: 1 DF, TID, 200 MG

REACTIONS (4)
  - Fall [Not Recovered/Not Resolved]
  - Subdural haematoma [Unknown]
  - Head injury [Unknown]
  - Product use in unapproved indication [Unknown]

NARRATIVE: CASE EVENT DATE: 20240213
